FAERS Safety Report 5081635-2 (Version None)
Quarter: 2006Q3

REPORT INFORMATION
  Report Type: 
  Country: None (occurrence: None)
  Receive Date: 20060811
  Receipt Date: 20060727
  Transmission Date: 20061208
  Serious: Yes (Hospitalization)
  Sender: FDA-Public Use
  Company Number: BR-2006-021482

PATIENT
  Age: 32 Year
  Sex: Female

DRUGS (1)
  1. BETAFERON (INTERFERON BETA - 1B) INJECTION, 250UG [Suspect]
     Indication: MULTIPLE SCLEROSIS
     Dosage: 3X/WEEK, SUBCUTANEOUS
     Route: 058
     Dates: start: 20040701, end: 20050101

REACTIONS (2)
  - MULTIPLE SCLEROSIS [None]
  - STEM CELL TRANSPLANT [None]
